FAERS Safety Report 14898514 (Version 2)
Quarter: 2019Q2

REPORT INFORMATION
  Report Type: Spontaneous
  Country: US (occurrence: US)
  Receive Date: 20180515
  Receipt Date: 20190604
  Transmission Date: 20190711
  Serious: No
  Sender: FDA-Public Use
  Company Number: US-ALLERGAN-1812447US

PATIENT
  Sex: Female

DRUGS (1)
  1. CONDYLOX [Suspect]
     Active Substance: PODOFILOX
     Indication: SKIN PAPILLOMA
     Dosage: UNK
     Route: 061
     Dates: end: 201802

REACTIONS (3)
  - Product colour issue [Unknown]
  - Therapeutic response decreased [Unknown]
  - Application site pain [Recovered/Resolved]
